FAERS Safety Report 22038207 (Version 1)
Quarter: 2023Q1

REPORT INFORMATION
  Report Type: Spontaneous
  Country: US (occurrence: US)
  Receive Date: 20230227
  Receipt Date: 20230227
  Transmission Date: 20230418
  Serious: No
  Sender: FDA-Public Use
  Company Number: US-BRISTOL-MYERS SQUIBB COMPANY-2023-027924

PATIENT
  Age: 71 Year
  Sex: Male
  Weight: 94.35 kg

DRUGS (3)
  1. REVLIMID [Suspect]
     Active Substance: LENALIDOMIDE
     Indication: Diffuse large B-cell lymphoma
     Dosage: DOSE : 25 MG;     FREQ : DAILY FOR 21 DAYS ON 7 DAYS OFF.
     Route: 048
     Dates: start: 202302
  2. MONJUVI [Concomitant]
     Active Substance: TAFASITAMAB-CXIX
     Indication: Lymphoma
  3. HIZENTRA [Concomitant]
     Active Substance: HUMAN IMMUNOGLOBULIN G
     Indication: Product used for unknown indication

REACTIONS (6)
  - Diarrhoea [Unknown]
  - Muscle spasms [Unknown]
  - Fatigue [Unknown]
  - Cough [Unknown]
  - Infection [Unknown]
  - Off label use [Unknown]

NARRATIVE: CASE EVENT DATE: 20230101
